FAERS Safety Report 6858268-8 (Version None)
Quarter: 2010Q3

REPORT INFORMATION
  Report Type: 
  Country: None (occurrence: None)
  Receive Date: 20100719
  Receipt Date: 20080203
  Transmission Date: 20110219
  Serious: No
  Sender: FDA-Public Use
  Company Number: US-PFIZER INC-2008011557

PATIENT
  Age: 45 Year
  Sex: Female
  Weight: 128.18 kg

DRUGS (17)
  1. CHANTIX [Suspect]
     Indication: SMOKING CESSATION THERAPY
     Route: 048
     Dates: start: 20080101
  2. DRUG, UNSPECIFIED [Interacting]
     Indication: SLEEP DISORDER
  3. ADVAIR DISKUS 100/50 [Concomitant]
  4. SPIRIVA [Concomitant]
  5. VENTOLIN [Concomitant]
  6. ALLOPURINOL [Concomitant]
  7. GLIPIZIDE [Concomitant]
  8. DIGITEK [Concomitant]
  9. POTASSIUM CHLORIDE [Concomitant]
  10. CALCIUM [Concomitant]
  11. MULTI-VITAMINS [Concomitant]
  12. FUROSEMIDE [Concomitant]
  13. PLAVIX [Concomitant]
  14. GLEEVEC [Concomitant]
     Indication: LEUKAEMIA
  15. METOPROLOL [Concomitant]
  16. LIPITOR [Concomitant]
  17. SIMVASTATIN [Concomitant]

REACTIONS (3)
  - ABNORMAL DREAMS [None]
  - DRUG INTERACTION [None]
  - NIGHTMARE [None]
